FAERS Safety Report 5357004-4 (Version None)
Quarter: 2007Q2

REPORT INFORMATION
  Report Type: 
  Country: None (occurrence: None)
  Receive Date: 20070612
  Receipt Date: 20070612
  Transmission Date: 20071010
  Serious: Yes (Hospitalization)
  Sender: FDA-Public Use
  Company Number: None

PATIENT
  Sex: Male
  Weight: 63.5036 kg

DRUGS (2)
  1. ETANERCEPT [Suspect]
     Indication: RHEUMATOID ARTHRITIS
     Dosage: 50MG WEEKLY SUBCUT.
     Route: 058
     Dates: start: 20050301
  2. METHOTREXATE [Suspect]
     Dosage: 12.5 MG WEEKLY ORAL
     Route: 048
     Dates: start: 20041101

REACTIONS (2)
  - PLEURAL EFFUSION [None]
  - RHEUMATOID ARTHRITIS [None]
